FAERS Safety Report 14106623 (Version 3)
Quarter: 2018Q1

REPORT INFORMATION
  Report Type: Spontaneous
  Country: US (occurrence: US)
  Receive Date: 20171019
  Receipt Date: 20180214
  Transmission Date: 20180508
  Serious: No
  Sender: FDA-Public Use
  Company Number: US-PFIZER INC-2017446511

PATIENT
  Age: 73 Year
  Sex: Female

DRUGS (2)
  1. DOXYCYCLINE. [Concomitant]
     Active Substance: DOXYCYCLINE
     Dosage: UNK
  2. EUCRISA [Suspect]
     Active Substance: CRISABOROLE
     Indication: ERYTHEMA
     Dosage: UNK, TWICE DALIY
     Dates: start: 20171115

REACTIONS (4)
  - Lip swelling [Unknown]
  - Product use in unapproved indication [Unknown]
  - Eye swelling [Unknown]
  - Malaise [Unknown]

NARRATIVE: CASE EVENT DATE: 20171115
